FAERS Safety Report 9297797 (Version 1)
Quarter: 2013Q2

REPORT INFORMATION
  Report Type: Spontaneous
  Country: FR (occurrence: FR)
  Receive Date: 20130520
  Receipt Date: 20130520
  Transmission Date: 20140414
  Serious: Yes (Hospitalization, Other)
  Sender: FDA-Public Use
  Company Number: PHHY2013FR033687

PATIENT
  Age: 80 Year
  Sex: Female
  Weight: 72 kg

DRUGS (10)
  1. AFINITOR [Suspect]
     Indication: BREAST CANCER
     Dosage: 10 MG, DAILY
     Dates: start: 20121112, end: 20130112
  2. AFINITOR [Suspect]
     Dosage: 5 MG, DAILY
     Dates: start: 20130113, end: 20130202
  3. ARIMIDEX [Suspect]
  4. DEROXAT [Concomitant]
     Indication: DEPRESSION
     Route: 048
  5. XANAX [Concomitant]
     Indication: DEPRESSION
  6. LAROXYL [Concomitant]
     Indication: DEPRESSION
     Route: 048
  7. TAHOR [Concomitant]
     Route: 048
  8. DIAMICRON [Concomitant]
     Route: 048
  9. METFORMINE [Concomitant]
  10. TRIATEC [Concomitant]
     Route: 048

REACTIONS (7)
  - Cardiac failure [Unknown]
  - Arrhythmia [Unknown]
  - Interstitial lung disease [Unknown]
  - Cough [Unknown]
  - Dyspnoea [Unknown]
  - Fatigue [Unknown]
  - Oedema peripheral [Unknown]
